FAERS Safety Report 12436723 (Version 1)
Quarter: 2016Q2

REPORT INFORMATION
  Report Type: Spontaneous
  Country: US (occurrence: None)
  Receive Date: 20160603
  Receipt Date: 20160603
  Transmission Date: 20160815
  Serious: Yes (Disabling)
  Sender: FDA-Public Use
  Company Number: None

PATIENT
  Age: 44 Year
  Sex: Female
  Weight: 52.16 kg

DRUGS (1)
  1. BOTOX [Suspect]
     Active Substance: ONABOTULINUMTOXINA
     Route: 058

REACTIONS (6)
  - Respiratory tract irritation [None]
  - Food intolerance [None]
  - Sinusitis [None]
  - Dyspnoea [None]
  - Throat irritation [None]
  - Pain [None]

NARRATIVE: CASE EVENT DATE: 20160316
